FAERS Safety Report 6711329-6 (Version None)
Quarter: 2010Q2

REPORT INFORMATION
  Report Type: 
  Country: None (occurrence: None)
  Receive Date: 20100504
  Receipt Date: 20100504
  Transmission Date: 20101027
  Serious: Yes (Hospitalization)
  Sender: FDA-Public Use
  Company Number: None

PATIENT
  Age: 77 Year
  Sex: Male

DRUGS (2)
  1. MELOXICAM [Suspect]
     Indication: ARTHRITIS
     Dosage: 7.5 MG EVERY DAY PO
     Route: 048
     Dates: start: 20100305, end: 20100322
  2. MELOXICAM [Suspect]
     Indication: PAIN
     Dosage: 7.5 MG EVERY DAY PO
     Route: 048
     Dates: start: 20100305, end: 20100322

REACTIONS (1)
  - GASTRIC HAEMORRHAGE [None]
